FAERS Safety Report 21363842 (Version 1)
Quarter: 2022Q3

REPORT INFORMATION
  Report Type: Report from Study
  Country: DE (occurrence: DE)
  Receive Date: 20220922
  Receipt Date: 20220922
  Transmission Date: 20221027
  Serious: Yes (Hospitalization)
  Sender: FDA-Public Use
  Company Number: DE-JAZZ-2022-DE-029933

PATIENT
  Sex: Male

DRUGS (1)
  1. CYTARABINE\DAUNORUBICIN [Suspect]
     Active Substance: CYTARABINE\DAUNORUBICIN
     Dosage: 144 MILLIGRAM/SQ. METER, QD
     Dates: start: 20220806, end: 20220810

REACTIONS (1)
  - Aplasia [Not Recovered/Not Resolved]

NARRATIVE: CASE EVENT DATE: 20220912
